FAERS Safety Report 4503527-7 (Version None)
Quarter: 2004Q4

REPORT INFORMATION
  Report Type: 
  Country: None (occurrence: None)
  Receive Date: 20041115
  Receipt Date: 20041102
  Transmission Date: 20050328
  Serious: Yes (Hospitalization)
  Sender: FDA-Public Use
  Company Number: 2004086348

PATIENT
  Age: 82 Year
  Sex: Male

DRUGS (10)
  1. LIPITOR [Suspect]
     Indication: ILL-DEFINED DISORDER
     Dosage: 10 MG ORAL
     Route: 048
  2. ASPIRIN [Concomitant]
  3. PERINDOPRIL (PERINDOPRIL) [Concomitant]
  4. TERAZOSIN HYDROCHLORIDE [Concomitant]
  5. BISOPROLOL FUMARATE [Concomitant]
  6. FUROSEMIDE [Concomitant]
  7. CLOPIDOGREL BISULFATE [Concomitant]
  8. CLOBUTINOL HYDROCHLORIDE        (CLOBUTINOL HYDROCHLORIDE) [Concomitant]
  9. ALPRAZOLAM [Concomitant]
  10. RANITIDINE HYDROCHLORIDE [Concomitant]

REACTIONS (4)
  - ALANINE AMINOTRANSFERASE INCREASED [None]
  - ASPARTATE AMINOTRANSFERASE INCREASED [None]
  - CARDIAC FAILURE ACUTE [None]
  - GAMMA-GLUTAMYLTRANSFERASE INCREASED [None]
